FAERS Safety Report 11345825 (Version 1)
Quarter: 2015Q3

REPORT INFORMATION
  Report Type: Report from Study
  Country: CN (occurrence: CN)
  Receive Date: 20150806
  Receipt Date: 20150806
  Transmission Date: 20151125
  Serious: Yes (Hospitalization)
  Sender: FDA-Public Use
  Company Number: CN-ASTRAZENECA-2015SE76144

PATIENT
  Age: 20712 Day
  Sex: Male

DRUGS (5)
  1. PACLITAXEL. [Suspect]
     Active Substance: PACLITAXEL
     Indication: GASTRIC CANCER
     Dosage: 80 MG/M2, 0.6 G/L, PLANNED DOSE PER ADMINISTRATION 121.6
     Route: 042
     Dates: start: 20150626, end: 20150726
  2. AZD2281 [Suspect]
     Active Substance: OLAPARIB
     Indication: GASTRIC CANCER
     Route: 048
     Dates: start: 20150626, end: 20150626
  3. PACLITAXEL. [Suspect]
     Active Substance: PACLITAXEL
     Indication: GASTRIC CANCER
     Dosage: 80 MG/M2, 0.6 G/L, PLANNED DOSE PER ADMINISTRATION 121.6
     Route: 042
     Dates: start: 20150707, end: 20150707
  4. AZD2281 [Suspect]
     Active Substance: OLAPARIB
     Indication: GASTRIC CANCER
     Route: 048
     Dates: start: 20150727, end: 20150727
  5. PACLITAXEL. [Suspect]
     Active Substance: PACLITAXEL
     Indication: GASTRIC CANCER
     Dosage: 80 MG/M2, 0.6 G/L, PLANNED DOSE PER ADMINISTRATION 121.6
     Route: 042
     Dates: start: 20150714, end: 20150714

REACTIONS (1)
  - Intestinal obstruction [Recovering/Resolving]

NARRATIVE: CASE EVENT DATE: 20150727
